FAERS Safety Report 5836743-2 (Version None)
Quarter: 2008Q3

REPORT INFORMATION
  Report Type: 
  Country: None (occurrence: None)
  Receive Date: 20080806
  Receipt Date: 20080806
  Transmission Date: 20090109
  Serious: Yes (Disabling)
  Sender: FDA-Public Use
  Company Number: None

PATIENT
  Age: 59 Year
  Sex: Male
  Weight: 127.9144 kg

DRUGS (1)
  1. DEFEROXAMINE MESYLATE [Suspect]
     Indication: IRON OVERLOAD
     Dosage: 2.5 GRAMS QDAY OVER 12 HOURS SQ
     Route: 058
     Dates: start: 20080520, end: 20080803

REACTIONS (1)
  - VISION BLURRED [None]
